FAERS Safety Report 4509650-5 (Version None)
Quarter: 2004Q4

REPORT INFORMATION
  Report Type: 
  Country: None (occurrence: None)
  Receive Date: 20041124
  Receipt Date: 20041115
  Transmission Date: 20050328
  Serious: Yes (Hospitalization)
  Sender: FDA-Public Use
  Company Number: 200414299FR

PATIENT
  Age: 80 Year
  Sex: Female

DRUGS (5)
  1. LASILIX FAIBLE [Suspect]
     Route: 048
     Dates: end: 20040914
  2. KARDEGIC [Suspect]
     Route: 048
     Dates: end: 20040914
  3. ARICEPT [Suspect]
     Indication: DEMENTIA ALZHEIMER'S TYPE
     Route: 048
  4. MOPRAL [Suspect]
     Indication: OESOPHAGITIS
     Route: 048
     Dates: end: 20040914
  5. NOVATREX ^LEDERLE^ [Suspect]
     Indication: RHEUMATOID ARTHRITIS
     Route: 048
     Dates: end: 20040913

REACTIONS (4)
  - BONE MARROW MYELOGRAM ABNORMAL [None]
  - FEBRILE NEUTROPENIA [None]
  - RASH VESICULAR [None]
  - STOMATITIS HAEMORRHAGIC [None]
